FAERS Safety Report 19065924 (Version 5)
Quarter: 2021Q2

REPORT INFORMATION
  Report Type: Report from Study
  Country: BR (occurrence: BR)
  Receive Date: 20210327
  Receipt Date: 20210609
  Transmission Date: 20210717
  Serious: Yes (Other)
  Sender: FDA-Public Use
  Company Number: NVSC2021BR067056

PATIENT
  Age: 74 Year
  Sex: Male
  Weight: 62 kg

DRUGS (7)
  1. VITAMIN D [Concomitant]
     Active Substance: VITAMIN D NOS
     Indication: PSORIASIS
     Dosage: 4 DRP, QD(FORMULATION: SOLUTION)
     Route: 048
  2. FOLIC ACID. [Concomitant]
     Active Substance: FOLIC ACID
     Indication: PSORIASIS
     Dosage: 1 DF, QD(START DATE: A LONG TIME AGO, TABLET WAS ONE TIME  EVERY WEDNESDAY)
     Route: 048
  3. COSENTYX [Suspect]
     Active Substance: SECUKINUMAB
     Indication: PSORIASIS
     Dosage: 300 MG (EVERY 8 DAYS)
     Route: 065
     Dates: start: 20200211
  4. COSENTYX [Suspect]
     Active Substance: SECUKINUMAB
     Dosage: 300 MG (EVERY 8 DAYS)
     Route: 058
  5. COSENTYX [Suspect]
     Active Substance: SECUKINUMAB
     Dosage: 300 MG, QMO
     Route: 058
     Dates: start: 20210423
  6. COSENTYX [Suspect]
     Active Substance: SECUKINUMAB
     Dosage: 150 UNK(EVERY 8 DAYS)
     Route: 058
     Dates: start: 202002, end: 20200922
  7. METHOTREXATE. [Concomitant]
     Active Substance: METHOTREXATE
     Indication: PSORIASIS
     Dosage: 2 DF(START DATE: A LONG TIME AGO, FREQ: EVERY MONDAY, TEUSADY EVERY 12 HOURS)
     Route: 048
     Dates: end: 202105

REACTIONS (17)
  - Nervousness [Not Recovered/Not Resolved]
  - Wound [Recovered/Resolved]
  - Inappropriate schedule of product administration [Recovered/Resolved]
  - Insomnia [Recovered/Resolved]
  - Psoriasis [Recovered/Resolved]
  - Weight decreased [Not Recovered/Not Resolved]
  - Erythema [Unknown]
  - Eating disorder [Not Recovered/Not Resolved]
  - Pain of skin [Recovered/Resolved]
  - Anger [Unknown]
  - Headache [Recovered/Resolved]
  - Diabetes mellitus [Recovered/Resolved]
  - Haemorrhage [Recovered/Resolved]
  - Skin disorder [Unknown]
  - Pruritus [Recovered/Resolved]
  - Skin burning sensation [Recovered/Resolved]
  - Dry skin [Unknown]

NARRATIVE: CASE EVENT DATE: 202002
